FAERS Safety Report 7101143-4 (Version None)
Quarter: 2010Q4

REPORT INFORMATION
  Report Type: 
  Country: None (occurrence: None)
  Receive Date: 20101105
  Receipt Date: 20101018
  Transmission Date: 20110411
  Serious: No
  Sender: FDA-Public Use
  Company Number: 2010-00899

PATIENT
  Age: 71 Year
  Sex: Male
  Weight: 71.6683 kg

DRUGS (1)
  1. ZICAM COLD REMEDY ORAL MIST [Suspect]
     Indication: NASOPHARYNGITIS
     Dosage: 3 DOSES X 2 DAYS;
     Dates: start: 20101016, end: 20101017

REACTIONS (2)
  - AGEUSIA [None]
  - NASOPHARYNGITIS [None]
